FAERS Safety Report 6816343-8 (Version None)
Quarter: 2010Q3

REPORT INFORMATION
  Report Type: 
  Country: None (occurrence: None)
  Receive Date: 20100705
  Receipt Date: 20100621
  Transmission Date: 20110219
  Serious: Yes (Other)
  Sender: FDA-Public Use
  Company Number: PHEH2007US03192

PATIENT
  Sex: Female

DRUGS (4)
  1. ZOMETA [Suspect]
  2. VERSED [Concomitant]
  3. FENTANYL [Concomitant]
  4. PROPOFOL [Concomitant]

REACTIONS (49)
  - ABDOMINAL DISCOMFORT [None]
  - ALVEOLOPLASTY [None]
  - ANXIETY [None]
  - ARTHRALGIA [None]
  - ATELECTASIS [None]
  - BONE DISORDER [None]
  - BORDERLINE PERSONALITY DISORDER [None]
  - BREAST CANCER [None]
  - DECREASED INTEREST [None]
  - DENTAL CARIES [None]
  - DENTAL NECROSIS [None]
  - DEPRESSION [None]
  - DYSPNOEA [None]
  - ENDODONTIC PROCEDURE [None]
  - EXOSTOSIS [None]
  - GALLBLADDER POLYP [None]
  - GENERAL PHYSICAL HEALTH DETERIORATION [None]
  - GINGIVAL PAIN [None]
  - HEPATIC CYST [None]
  - HEPATIC STEATOSIS [None]
  - ILEUS [None]
  - INFLAMMATION OF WOUND [None]
  - INTERVERTEBRAL DISC DEGENERATION [None]
  - INTERVERTEBRAL DISC PROTRUSION [None]
  - INTRAOSSEOUS ANGIOMA [None]
  - LUMBAR SPINAL STENOSIS [None]
  - LUNG NEOPLASM [None]
  - LYMPHADENOPATHY [None]
  - MALIGNANT NEOPLASM PROGRESSION [None]
  - MASTICATION DISORDER [None]
  - METASTASES TO BONE [None]
  - METASTASES TO LUNG [None]
  - METASTASES TO LYMPH NODES [None]
  - NERVE BLOCK [None]
  - ORAL PAIN [None]
  - ORAL SURGERY [None]
  - OSTEOMYELITIS [None]
  - OSTEONECROSIS OF JAW [None]
  - PAIN [None]
  - PAIN IN JAW [None]
  - PERIODONTITIS [None]
  - PLEURAL EFFUSION [None]
  - PULMONARY EMBOLISM [None]
  - SEROMA [None]
  - SLEEP APNOEA SYNDROME [None]
  - SPINAL OSTEOARTHRITIS [None]
  - SPONDYLOLISTHESIS [None]
  - TOOTH EXTRACTION [None]
  - WOUND DEHISCENCE [None]
